FAERS Safety Report 21602031 (Version 1)
Quarter: 2022Q4

REPORT INFORMATION
  Report Type: Spontaneous
  Country: HU (occurrence: HU)
  Receive Date: 20221116
  Receipt Date: 20221116
  Transmission Date: 20230112
  Serious: Yes (Hospitalization)
  Sender: FDA-Public Use
  Company Number: HU-009507513-2211HUN003976

PATIENT
  Age: 18 Year
  Sex: Male

DRUGS (1)
  1. KEYTRUDA [Suspect]
     Active Substance: PEMBROLIZUMAB
     Indication: Colorectal cancer
     Dosage: UNK

REACTIONS (2)
  - Polydipsia [Unknown]
  - Urine output increased [Unknown]

NARRATIVE: CASE EVENT DATE: 20221104
